FAERS Safety Report 8189980-9 (Version None)
Quarter: 2012Q1

REPORT INFORMATION
  Report Type: 
  Country: None (occurrence: None)
  Receive Date: 20120305
  Receipt Date: 20120220
  Transmission Date: 20120608
  Serious: Yes (Death)
  Sender: FDA-Public Use
  Company Number: UTC-015736

PATIENT
  Age: 80 Year
  Sex: Male

DRUGS (2)
  1. REMODULIN [Suspect]
     Indication: COR PULMONALE CHRONIC
     Dosage: .033-.055 UG/KG (1 IN 1 MIN)
     Dates: start: 20101103
  2. REMODULIN [Suspect]
     Indication: PULMONARY ARTERIAL HYPERTENSION
     Dosage: .033-.055 UG/KG (1 IN 1 MIN)
     Dates: start: 20101103

REACTIONS (1)
  - HOSPITALISATION [None]
